FAERS Safety Report 9171232 (Version 1)
Quarter: 2013Q1

REPORT INFORMATION
  Report Type: Spontaneous
  Country: US (occurrence: None)
  Receive Date: 20130318
  Receipt Date: 20130318
  Transmission Date: 20140127
  Serious: No
  Sender: FDA-Public Use
  Company Number: None

PATIENT
  Age: 59 Year
  Sex: Male
  Weight: 72.58 kg

DRUGS (1)
  1. RANITIDINE [Suspect]
     Indication: REFLUX LARYNGITIS
     Dosage: 1 TABLET, TWICE A DAY, MOUTH
     Route: 048
     Dates: start: 20130209, end: 20130215

REACTIONS (1)
  - Dyspnoea [None]
